FAERS Safety Report 20411082 (Version 1)
Quarter: 2022Q1

REPORT INFORMATION
  Report Type: Spontaneous
  Country: US (occurrence: None)
  Receive Date: 20220131
  Receipt Date: 20220131
  Transmission Date: 20220423
  Serious: Yes (Hospitalization)
  Sender: FDA-Public Use
  Company Number: None

PATIENT
  Age: 70 Year
  Sex: Male
  Weight: 98 kg

DRUGS (1)
  1. TICAGRELOR [Suspect]
     Active Substance: TICAGRELOR
     Indication: Vascular device user
     Dosage: FREQUENCY : TWICE A DAY;?
     Route: 048
     Dates: start: 20210803, end: 20210816

REACTIONS (5)
  - Dyspnoea exertional [None]
  - Chest pain [None]
  - Palpitations [None]
  - Dizziness [None]
  - Therapy cessation [None]

NARRATIVE: CASE EVENT DATE: 20210815
